FAERS Safety Report 4786950-5 (Version None)
Quarter: 2005Q3

REPORT INFORMATION
  Report Type: 
  Country: None (occurrence: None)
  Receive Date: 20050930
  Receipt Date: 20050126
  Transmission Date: 20060218
  Serious: Yes (Hospitalization)
  Sender: FDA-Public Use
  Company Number: 2005FR-00331

PATIENT
  Age: 22 Year
  Sex: Male

DRUGS (1)
  1. PARACETAMOL [Suspect]
     Dosage: 32G

REACTIONS (6)
  - BLOOD CREATININE INCREASED [None]
  - CARDIAC ARREST [None]
  - HEPATIC FAILURE [None]
  - INTENTIONAL MISUSE [None]
  - OLIGURIA [None]
  - OVERDOSE [None]
